FAERS Safety Report 10186223 (Version 1)
Quarter: 2014Q2

REPORT INFORMATION
  Report Type: Spontaneous
  Country: TR (occurrence: TR)
  Receive Date: 20140521
  Receipt Date: 20140521
  Transmission Date: 20141212
  Serious: Yes (Other)
  Sender: FDA-Public Use
  Company Number: TR-AMGEN INC.-TURSP2014035416

PATIENT
  Sex: Female
  Weight: 3.2 kg

DRUGS (1)
  1. MIMPARA [Suspect]
     Indication: HYPERPARATHYROIDISM
     Dosage: 30 MG/M2, QD
     Route: 065

REACTIONS (5)
  - Drug ineffective [Unknown]
  - Hypercalcaemia [Unknown]
  - Parathyroidectomy [Unknown]
  - Hungry bone syndrome [Recovered/Resolved]
  - Hypocalcaemia [Unknown]
